FAERS Safety Report 8256832-5 (Version None)
Quarter: 2012Q2

REPORT INFORMATION
  Report Type: 
  Country: None (occurrence: None)
  Receive Date: 20120403
  Receipt Date: 20120328
  Transmission Date: 20120825
  Serious: Yes (Other)
  Sender: FDA-Public Use
  Company Number: US-AMGEN-USASP2012009295

PATIENT
  Age: 58 Year
  Sex: Female
  Weight: 91.61 kg

DRUGS (6)
  1. SERTRALINE HYDROCHLORIDE [Concomitant]
     Dosage: 150 MG, UNK
     Route: 048
  2. PROLIA [Suspect]
     Indication: OSTEOPOROSIS
     Dosage: 60 MG, Q6MO
     Route: 058
     Dates: start: 20120112
  3. CLONIDINE [Concomitant]
     Dosage: 0.2 MG, QD
     Route: 048
  4. CALCIUM CARBONATE [Concomitant]
     Dosage: 500 MG, QD
     Route: 048
  5. FISH OIL [Concomitant]
     Dosage: 1000 MG, QD
     Route: 048
  6. FEMARA [Concomitant]
     Dosage: 2.5 MG, QD
     Route: 048
     Dates: start: 20070619

REACTIONS (1)
  - ARTHRALGIA [None]
